FAERS Safety Report 7982836-3 (Version None)
Quarter: 2011Q4

REPORT INFORMATION
  Report Type: 
  Country: None (occurrence: None)
  Receive Date: 20111215
  Receipt Date: 20111208
  Transmission Date: 20120403
  Serious: Yes (Other)
  Sender: FDA-Public Use
  Company Number: US-BAYER-201039617NA

PATIENT
  Age: 49 Year
  Sex: Male
  Weight: 88 kg

DRUGS (13)
  1. TRASYLOL [Suspect]
     Indication: AORTIC ANEURYSM REPAIR
     Dosage: UNK
     Route: 042
     Dates: start: 20030827, end: 20030827
  2. TRASYLOL [Suspect]
     Dosage: INFUSION AT UNDOCUMENTED RATE
     Route: 042
     Dates: start: 20030827, end: 20030827
  3. FENTANYL [Concomitant]
     Dosage: 950 MG, UNK
     Route: 042
     Dates: start: 20030827
  4. PROTAMINE SULFATE [Concomitant]
     Dosage: UNK
     Dates: start: 20030827
  5. NIFEDIPINE [Concomitant]
  6. VERSED [Concomitant]
     Dosage: 3 MG, UNK
     Route: 042
     Dates: start: 20030827
  7. TRASYLOL [Suspect]
     Dosage: 200 ML (LOADING DOSE)
     Route: 042
     Dates: start: 20030827, end: 20030827
  8. NIFEDIPINE [Concomitant]
     Dosage: 90 MG, BID (LONG TERM)
     Route: 048
  9. TRASYLOL [Suspect]
     Indication: AORTIC VALVE REPLACEMENT
     Dosage: 100 ML CARDIOPULMONARY BYPASS PRIME
     Route: 042
     Dates: start: 20030827, end: 20030827
  10. OPTIRAY 160 [Concomitant]
     Indication: CATHETERISATION CARDIAC
     Dosage: 40 ML, UNK
     Route: 042
     Dates: start: 20030427
  11. ENALAPRIL MALEATE [Concomitant]
     Dosage: 20 MG, QD (LONG TERM)
     Route: 048
  12. NEXIUM [Concomitant]
     Dosage: 40 MG, QD (LONG TERM)
     Route: 048
  13. HEPARIN [Concomitant]
     Dosage: UNK
     Route: 042
     Dates: start: 20030827

REACTIONS (11)
  - FEAR [None]
  - RENAL INJURY [None]
  - ANXIETY [None]
  - PAIN [None]
  - INJURY [None]
  - UNEVALUABLE EVENT [None]
  - EMOTIONAL DISTRESS [None]
  - MENTAL DISORDER [None]
  - STRESS [None]
  - RENAL FAILURE [None]
  - RENAL IMPAIRMENT [None]
